FAERS Safety Report 10217209 (Version 1)
Quarter: 2014Q2

REPORT INFORMATION
  Report Type: Spontaneous
  Country: US (occurrence: US)
  Receive Date: 20140604
  Receipt Date: 20140604
  Transmission Date: 20141212
  Serious: Yes (Other)
  Sender: FDA-Public Use
  Company Number: US-ACTAVIS-2014-11994

PATIENT
  Age: 48 Year
  Sex: Male
  Weight: 90 kg

DRUGS (14)
  1. HALOPERIDOL LACTATE (WATSON LABORATORIES) [Suspect]
     Indication: DELIRIUM
     Dosage: 60 MG, DAILY
     Route: 042
  2. HALOPERIDOL LACTATE (WATSON LABORATORIES) [Suspect]
     Dosage: 5 MG, Q6H
     Route: 042
  3. LORAZEPAM (WATSON LABORATORIES) [Suspect]
     Indication: PROPHYLAXIS AGAINST ALCOHOLIC WITHDRAWAL SYNDROME
     Dosage: 4 MG, Q2H, AS NEEDED
     Route: 042
  4. MEROPENEM [Concomitant]
     Indication: ANTIBIOTIC THERAPY
     Dosage: UNKNOWN
     Route: 065
  5. LINEZOLID [Concomitant]
     Indication: ANTIBIOTIC THERAPY
     Dosage: UNKNOWN
     Route: 065
  6. ENOXAPARIN [Concomitant]
     Indication: PRODUCT USED FOR UNKNOWN INDICATION
     Dosage: 40 MG, UNK
     Route: 058
  7. FAMOTIDINE [Concomitant]
     Indication: PRODUCT USED FOR UNKNOWN INDICATION
     Dosage: 20 MG, BID
     Route: 050
  8. VANCOMYCIN [Concomitant]
     Indication: PRODUCT USED FOR UNKNOWN INDICATION
     Dosage: 250 MG, Q6H
     Route: 065
  9. FENTANYL [Concomitant]
     Indication: PAIN
     Dosage: 75 ?G, EVERY 72 HOURS
     Route: 062
  10. FENTANYL [Concomitant]
     Dosage: UNK
     Route: 042
  11. CEFEPIME [Concomitant]
     Indication: ANTIBIOTIC THERAPY
     Dosage: UNK
     Route: 065
  12. THIAMINE [Concomitant]
     Indication: PRODUCT USED FOR UNKNOWN INDICATION
     Dosage: UNK
     Route: 065
  13. FOLIC ACID [Concomitant]
     Indication: PRODUCT USED FOR UNKNOWN INDICATION
     Dosage: UNK
     Route: 065
  14. MULTIVITAMIN                       /07504101/ [Concomitant]
     Indication: PRODUCT USED FOR UNKNOWN INDICATION
     Dosage: UNK
     Route: 065

REACTIONS (2)
  - Neuroleptic malignant syndrome [Recovered/Resolved]
  - Delirium [Recovered/Resolved]
